FAERS Safety Report 9137472 (Version 1)
Quarter: 2013Q1

REPORT INFORMATION
  Report Type: Spontaneous
  Country: IT (occurrence: IT)
  Receive Date: 20130304
  Receipt Date: 20130304
  Transmission Date: 20140127
  Serious: Yes (Hospitalization)
  Sender: FDA-Public Use
  Company Number: IT-ASTRAZENECA-2013SE12457

PATIENT
  Age: 75 Year
  Sex: Male

DRUGS (6)
  1. SEROQUEL [Suspect]
     Indication: SENILE DEMENTIA
     Route: 048
     Dates: start: 20110720, end: 20110823
  2. STILNOX [Suspect]
     Indication: SENILE DEMENTIA
     Route: 048
     Dates: start: 20110615, end: 20110823
  3. TALOFEN [Suspect]
     Indication: SENILE DEMENTIA
     Dosage: 25 MG/ML, 50 MG, DAILY
     Route: 048
     Dates: start: 20110720, end: 20110823
  4. ASA [Concomitant]
  5. TRIATEC(RAMIPRIL ) [Concomitant]
  6. LIMPIDEX(LANSOPRAZOLE) [Concomitant]

REACTIONS (1)
  - Sopor [Recovering/Resolving]
